FAERS Safety Report 10633806 (Version 1)
Quarter: 2014Q4

REPORT INFORMATION
  Report Type: Spontaneous
  Country: US (occurrence: None)
  Receive Date: 20141203
  Receipt Date: 20141203
  Transmission Date: 20150529
  Serious: Yes (Other)
  Sender: FDA-Public Use
  Company Number: INT_00532_2014

PATIENT
  Age: 68 Year
  Sex: Female

DRUGS (1)
  1. PACLITAXEL. [Suspect]
     Active Substance: PACLITAXEL
     Indication: INVASIVE DUCTAL BREAST CARCINOMA
     Dosage: (80 MG/M2 1X/WEEK, [12 CYCLES])

REACTIONS (8)
  - Haemorrhage [None]
  - Pyogenic granuloma [None]
  - Enterobacter test positive [None]
  - Enterococcus test positive [None]
  - Pain in extremity [None]
  - Onycholysis [None]
  - Nail discolouration [None]
  - Pseudomonas test positive [None]
